FAERS Safety Report 10053635 (Version 1)
Quarter: 2014Q2

REPORT INFORMATION
  Report Type: Spontaneous
  Country: US (occurrence: US)
  Receive Date: 20140402
  Receipt Date: 20140402
  Transmission Date: 20141212
  Serious: No
  Sender: FDA-Public Use
  Company Number: US-PFIZER INC-2014092275

PATIENT
  Age: 62 Year
  Sex: Male
  Weight: 99.77 kg

DRUGS (10)
  1. CHANTIX [Suspect]
     Indication: SMOKING CESSATION THERAPY
     Dosage: UNK
     Route: 048
     Dates: start: 201308
  2. CHANTIX [Suspect]
     Dosage: UNK
     Route: 048
     Dates: start: 2014, end: 2014
  3. PROTONIX [Concomitant]
     Dosage: UNK
  4. ATIVAN [Concomitant]
     Dosage: UNK
  5. SPIRIVA [Concomitant]
     Dosage: UNK
  6. CELEXA [Concomitant]
     Dosage: UNK
  7. VERAPAMIL [Concomitant]
     Dosage: UNK
  8. LYRICA [Concomitant]
     Dosage: UNK
  9. FENTANYL [Concomitant]
     Dosage: UNK
  10. SINGULAIR [Concomitant]
     Dosage: UNK

REACTIONS (2)
  - Lung disorder [Unknown]
  - Tobacco user [Unknown]
